FAERS Safety Report 7301959-5 (Version None)
Quarter: 2011Q1

REPORT INFORMATION
  Report Type: 
  Country: None (occurrence: None)
  Receive Date: 20110218
  Receipt Date: 20110214
  Transmission Date: 20110831
  Serious: Yes (Life-Threatening, Disabling, Other)
  Sender: FDA-Public Use
  Company Number: US-ROCHE-759928

PATIENT
  Sex: Male

DRUGS (5)
  1. PEPCID [Concomitant]
     Dates: start: 20060516
  2. LABETALOL [Concomitant]
     Dates: start: 20020513
  3. MYCOPHENOLATE MEFETIL [Suspect]
     Route: 048
     Dates: start: 20020502
  4. PREDNISONE [Suspect]
     Route: 065
     Dates: start: 20020502
  5. BELATACEPT [Suspect]
     Route: 042
     Dates: start: 20020502, end: 20110124

REACTIONS (7)
  - CERVICAL VERTEBRAL FRACTURE [None]
  - PNEUMONIA [None]
  - QUADRIPLEGIA [None]
  - RESPIRATORY FAILURE [None]
  - CARDIAC ARREST [None]
  - SINUS BRADYCARDIA [None]
  - PARALYSIS [None]
